FAERS Safety Report 10196986 (Version 1)
Quarter: 2014Q2

REPORT INFORMATION
  Report Type: Spontaneous
  Country: US (occurrence: US)
  Receive Date: 20140527
  Receipt Date: 20140527
  Transmission Date: 20141212
  Serious: Yes (Other)
  Sender: FDA-Public Use
  Company Number: US-RB-066193-14

PATIENT
  Age: 31 Year
  Sex: Female

DRUGS (1)
  1. MUCINEX FAST MAX CAPLETS FOR SEVERE CONGESTION AND COUGH [Suspect]
     Indication: PRODUCT USED FOR UNKNOWN INDICATION
     Dosage: CONSUMER LAST USED THE PRODUCT ON 29-APR-2014
     Route: 048
     Dates: start: 20140429

REACTIONS (3)
  - Deafness [Recovered/Resolved]
  - Drug ineffective [Not Recovered/Not Resolved]
  - Deafness transitory [None]
